FAERS Safety Report 7978565-2 (Version None)
Quarter: 2011Q4

REPORT INFORMATION
  Report Type: 
  Country: None (occurrence: None)
  Receive Date: 20111214
  Receipt Date: 20111202
  Transmission Date: 20120403
  Serious: Yes (Other)
  Sender: FDA-Public Use
  Company Number: US-JNJFOC-20111202040

PATIENT
  Sex: Male

DRUGS (5)
  1. REMICADE [Suspect]
     Indication: CROHN'S DISEASE
     Route: 042
  2. REMICADE [Suspect]
     Route: 042
  3. REMICADE [Suspect]
     Dosage: 5TH INFUSION
     Route: 042
  4. CORTICOSTEROIDS [Concomitant]
  5. REMICADE [Suspect]
     Route: 042

REACTIONS (4)
  - SWELLING FACE [None]
  - URTICARIA [None]
  - INFUSION RELATED REACTION [None]
  - OCULAR HYPERAEMIA [None]
